FAERS Safety Report 5395584-3 (Version None)
Quarter: 2007Q3

REPORT INFORMATION
  Report Type: 
  Country: None (occurrence: None)
  Receive Date: 20070718
  Receipt Date: 20070320
  Transmission Date: 20080115
  Serious: Yes (Hospitalization, Other)
  Sender: FDA-Public Use
  Company Number: 2006133716

PATIENT
  Sex: Female

DRUGS (3)
  1. CELEBREX [Suspect]
     Indication: ARTHRITIS
     Dosage: 400 MG (200 MG,2 IN 1 D),ORAL
     Route: 048
     Dates: start: 20000222, end: 20030301
  2. BEXTRA [Suspect]
     Indication: ARTHRITIS
     Dosage: (10 MG, ONCE OR TWICE DAILY),ORAL
     Route: 048
     Dates: start: 20030319, end: 20040201
  3. VIOXX [Suspect]
     Dosage: ORAL
     Route: 048
     Dates: start: 20010522

REACTIONS (1)
  - MYOCARDIAL INFARCTION [None]
